FAERS Safety Report 7089774-1 (Version None)
Quarter: 2010Q4

REPORT INFORMATION
  Report Type: 
  Country: None (occurrence: None)
  Receive Date: 20101108
  Receipt Date: 20101104
  Transmission Date: 20110411
  Serious: Yes (Death)
  Sender: FDA-Public Use
  Company Number: BE-PFIZER INC-2010141229

PATIENT
  Age: 68 Year
  Sex: Male

DRUGS (7)
  1. METHYLPREDNISOLONE [Suspect]
     Indication: PNEUMOCYSTIS JIROVECI PNEUMONIA
     Dosage: 4 MG, 1X/DAY
  2. GANCICLOVIR [Concomitant]
     Indication: ANTIVIRAL PROPHYLAXIS
  3. VALGANCICLOVIR [Concomitant]
     Indication: ANTIVIRAL PROPHYLAXIS
  4. SULFAMETHOXAZOLE AND TRIMETHOPRIM [Concomitant]
     Indication: PNEUMOCYSTIS JIROVECI PNEUMONIA
  5. PENTAMIDINE [Concomitant]
     Indication: PNEUMOCYSTIS JIROVECI PNEUMONIA
     Route: 042
  6. CASPOFUNGIN [Concomitant]
     Indication: PNEUMOCYSTIS JIROVECI PNEUMONIA
  7. CYCLOSPORINE [Concomitant]
     Indication: GRAFT VERSUS HOST DISEASE

REACTIONS (1)
  - ORGANISING PNEUMONIA [None]
